FAERS Safety Report 10526620 (Version 1)
Quarter: 2014Q4

REPORT INFORMATION
  Report Type: Spontaneous
  Country: US (occurrence: None)
  Receive Date: 20141015
  Receipt Date: 20141015
  Transmission Date: 20150528
  Serious: Yes (Hospitalization, Disabling)
  Sender: FDA-Public Use
  Company Number: None

PATIENT
  Age: 83 Year
  Sex: Female
  Weight: 102.06 kg

DRUGS (1)
  1. PROLIA [Suspect]
     Active Substance: DENOSUMAB
     Indication: SUPPORTIVE CARE
     Dates: start: 20140724

REACTIONS (13)
  - Dysarthria [None]
  - Fatigue [None]
  - Pain [None]
  - Limb discomfort [None]
  - Blood urine present [None]
  - Arthralgia [None]
  - Walking aid user [None]
  - Hemiparesis [None]
  - Balance disorder [None]
  - Dysuria [None]
  - Hypoaesthesia oral [None]
  - Asthenia [None]
  - VIIth nerve paralysis [None]

NARRATIVE: CASE EVENT DATE: 20140724
